FAERS Safety Report 6698447-6 (Version None)
Quarter: 2010Q2

REPORT INFORMATION
  Report Type: 
  Country: None (occurrence: None)
  Receive Date: 20100421
  Receipt Date: 20100408
  Transmission Date: 20101027
  Serious: Yes (Hospitalization)
  Sender: FDA-Public Use
  Company Number: 008307

PATIENT
  Sex: Female

DRUGS (5)
  1. CERTOLIZUMAB PEGOL (CDP870) [Suspect]
     Indication: RHEUMATOID ARTHRITIS
     Dosage: (SUBCUTANEOUS)
     Route: 058
     Dates: start: 20091116
  2. PREDNISOLONE [Suspect]
     Indication: RHEUMATOID ARTHRITIS
     Dosage: (2.5 MG QD)
     Dates: start: 20081211
  3. KETOPROFEN [Concomitant]
  4. AMLODIPINE BESYLATE [Concomitant]
  5. ECABET MONOSODIUM [Concomitant]

REACTIONS (4)
  - ARTHRITIS BACTERIAL [None]
  - CYST [None]
  - JOINT EFFUSION [None]
  - STAPHYLOCOCCAL INFECTION [None]
